FAERS Safety Report 4889249-1 (Version None)
Quarter: 2006Q1

REPORT INFORMATION
  Report Type: 
  Country: None (occurrence: None)
  Receive Date: 20060120
  Receipt Date: 20060112
  Transmission Date: 20060701
  Serious: Yes (Hospitalization)
  Sender: FDA-Public Use
  Company Number: 230213K06USA

PATIENT
  Age: 57 Year
  Sex: Female

DRUGS (5)
  1. REBIF [Suspect]
     Indication: MULTIPLE SCLEROSIS
     Dosage: 44 MCG, 3 IN 1 WEEKS, SUBCUTANEOUS
     Route: 058
     Dates: start: 20051011
  2. NEURONTIN [Concomitant]
  3. PROVIGIL [Concomitant]
  4. PREMARIN [Concomitant]
  5. NEXIUM [Concomitant]

REACTIONS (4)
  - APPENDICECTOMY [None]
  - BACTERIAL INFECTION [None]
  - FEELING ABNORMAL [None]
  - NAUSEA [None]
